FAERS Safety Report 23148228 (Version 2)
Quarter: 2025Q1

REPORT INFORMATION
  Report Type: Spontaneous
  Country: US (occurrence: US)
  Receive Date: 20231106
  Receipt Date: 20250228
  Transmission Date: 20250409
  Serious: No
  Sender: LUPIN
  Company Number: US-LUPIN PHARMACEUTICALS INC.-2023-09659

PATIENT

DRUGS (1)
  1. ALBUTEROL SULFATE [Suspect]
     Active Substance: ALBUTEROL SULFATE
     Indication: Prostate cancer stage III

REACTIONS (3)
  - Product use in unapproved indication [Unknown]
  - Therapeutic product ineffective for unapproved indication [Unknown]
  - No adverse event [Unknown]
